FAERS Safety Report 13047171 (Version 1)
Quarter: 2016Q4

REPORT INFORMATION
  Report Type: Spontaneous
  Country: US (occurrence: US)
  Receive Date: 20161220
  Receipt Date: 20161220
  Transmission Date: 20170207
  Serious: Yes (Hospitalization, Other)
  Sender: FDA-Public Use
  Company Number: US-BAUSCH-BL-2016-031602

PATIENT
  Age: 55 Year
  Sex: Male

DRUGS (1)
  1. RETINOIC ACID [Suspect]
     Active Substance: TRETINOIN
     Indication: ACUTE LEUKAEMIA
     Route: 065

REACTIONS (4)
  - Acute promyelocytic leukaemia differentiation syndrome [Unknown]
  - H1N1 influenza [Unknown]
  - Pericardial effusion [Unknown]
  - Pneumonia [Unknown]
